FAERS Safety Report 23351183 (Version 1)
Quarter: 2023Q4

REPORT INFORMATION
  Report Type: Spontaneous
  Country: US (occurrence: None)
  Receive Date: 20231228
  Receipt Date: 20231228
  Transmission Date: 20240110
  Serious: Yes (Hospitalization)
  Sender: FDA-Public Use
  Company Number: None

PATIENT
  Age: 59 Year
  Sex: Female

DRUGS (1)
  1. TYMLOS [Suspect]
     Active Substance: ABALOPARATIDE
     Indication: Product used for unknown indication
     Dosage: FREQUENCY : DAILY;?
     Route: 058
     Dates: start: 20231010, end: 20231210

REACTIONS (6)
  - Headache [None]
  - Muscle spasms [None]
  - Diarrhoea [None]
  - Constipation [None]
  - Drug intolerance [None]
  - Ligament rupture [None]
